FAERS Safety Report 23461855 (Version 1)
Quarter: 2024Q1

REPORT INFORMATION
  Report Type: Spontaneous
  Country: CZ (occurrence: CZ)
  Receive Date: 20240131
  Receipt Date: 20240131
  Transmission Date: 20240409
  Serious: Yes (Other)
  Sender: FDA-Public Use
  Company Number: CZ-MYLANLABS-2024M1009670

PATIENT
  Age: 2 Year
  Sex: Male

DRUGS (1)
  1. VERAPAMIL [Suspect]
     Active Substance: VERAPAMIL HYDROCHLORIDE
     Indication: Product used for unknown indication
     Dosage: UNK
     Route: 065

REACTIONS (10)
  - Toxicity to various agents [Unknown]
  - Seizure [Unknown]
  - Ventricular tachycardia [Unknown]
  - Anuria [Unknown]
  - Thrombocytopenia [Unknown]
  - Coma [Unknown]
  - Extrasystoles [Unknown]
  - Hypotension [Unknown]
  - Heart rate irregular [Unknown]
  - Pallor [Unknown]
